FAERS Safety Report 4651229-9 (Version None)
Quarter: 2005Q2

REPORT INFORMATION
  Report Type: 
  Country: None (occurrence: None)
  Receive Date: 20050503
  Receipt Date: 20050428
  Transmission Date: 20051028
  Serious: Yes (Other)
  Sender: FDA-Public Use
  Company Number: PHEH2005US04971

PATIENT
  Age: 64 Year
  Sex: Female

DRUGS (4)
  1. THALOMID [Concomitant]
     Dosage: 200 MG, QD
  2. DECADRON [Concomitant]
     Dosage: 40 MG, QW
  3. FOSAMAX ONCE WEEKLY [Concomitant]
     Dosage: 70 MG, QW
  4. ZOMETA [Suspect]
     Indication: MULTIPLE MYELOMA
     Dosage: 4.1 MG EVERY MONTH

REACTIONS (4)
  - ASEPTIC NECROSIS BONE [None]
  - DENTAL TREATMENT [None]
  - MASTICATION DISORDER [None]
  - PAIN IN JAW [None]
